FAERS Safety Report 6615922-0 (Version None)
Quarter: 2010Q1

REPORT INFORMATION
  Report Type: 
  Country: None (occurrence: None)
  Receive Date: 20100305
  Receipt Date: 20100223
  Transmission Date: 20100710
  Serious: Yes (Hospitalization)
  Sender: FDA-Public Use
  Company Number: GXKR2010JP02223

PATIENT
  Age: 74 Year
  Sex: Female

DRUGS (1)
  1. ITRACONAZOLE [Suspect]
     Indication: TINEA PEDIS
     Dosage: 200 MG/DAY
     Route: 065

REACTIONS (5)
  - ARTHRITIS [None]
  - FACTOR VIII DEFICIENCY [None]
  - MUSCLE HAEMORRHAGE [None]
  - OEDEMA PERIPHERAL [None]
  - PALPABLE PURPURA [None]
